FAERS Safety Report 19845019 (Version 3)
Quarter: 2021Q4

REPORT INFORMATION
  Report Type: Spontaneous
  Country: RU (occurrence: RU)
  Receive Date: 20210916
  Receipt Date: 20211104
  Transmission Date: 20220303
  Serious: Yes (Other)
  Sender: FDA-Public Use
  Company Number: RU-ORGANON-O2109RUS000722

PATIENT
  Age: 65 Year
  Sex: Male

DRUGS (11)
  1. LOSARTAN POTASSIUM [Suspect]
     Active Substance: LOSARTAN POTASSIUM
     Indication: Hypertension
     Dosage: 25 MG 2 TIMES EVERY DAY
     Route: 048
  2. BISOPROLOL [Suspect]
     Active Substance: BISOPROLOL
     Dosage: 2.5 MG IN THE MORNING
  3. APIXABAN [Suspect]
     Active Substance: APIXABAN
     Dosage: UNK
  4. ACETAMINOPHEN [Suspect]
     Active Substance: ACETAMINOPHEN
     Dosage: 1000 MG, ONCE ON THE DAY OF ADMISSION
     Route: 041
  5. FAVIPIRAVIR [Suspect]
     Active Substance: FAVIPIRAVIR
     Dosage: 1600 MILLIGRAM ON THE DAY OF ADMISSION
  6. FAVIPIRAVIR [Suspect]
     Active Substance: FAVIPIRAVIR
     Dosage: 600 MG, 2 TIMES A DAY FOR A WEEK
  7. DEXAMETHASONE [Suspect]
     Active Substance: DEXAMETHASONE
     Dosage: 8 MG 2 TIMES A DAY FOR 6 DAYS
     Route: 042
  8. OLOKIZUMAB [Suspect]
     Active Substance: OLOKIZUMAB
     Dosage: 64 MG, ONCE
     Route: 058
  9. OMEPRAZOLE [Suspect]
     Active Substance: OMEPRAZOLE
     Dosage: 20 MG 1 TIME A DAY CONSTANTLY
  10. ENOXAPARIN SODIUM [Concomitant]
     Active Substance: ENOXAPARIN SODIUM
     Dosage: 8000 IU OF ANTI-XA ACTIVITY TWO TIMES EVERY DAY
     Route: 058
  11. ASPIRIN [Concomitant]
     Active Substance: ASPIRIN
     Dosage: 100 MILLIGRAM, QD

REACTIONS (1)
  - Cerebellar stroke [Recovering/Resolving]
